FAERS Safety Report 12625338 (Version 1)
Quarter: 2016Q3

REPORT INFORMATION
  Report Type: Spontaneous
  Country: US (occurrence: US)
  Receive Date: 20160805
  Receipt Date: 20160805
  Transmission Date: 20161109
  Serious: Yes (Other)
  Sender: FDA-Public Use
  Company Number: US-LPDUSPRD-20160664

PATIENT
  Age: 35 Year
  Sex: Female
  Weight: 62 kg

DRUGS (11)
  1. ATORVASTATIN [Concomitant]
     Active Substance: ATORVASTATIN
     Dosage: DOSE UNKNOWN
     Route: 065
  2. ASPIRIN. [Concomitant]
     Active Substance: ASPIRIN
     Dosage: DOSE UNKNOWN
     Route: 065
  3. NEUTRAL PROTAMINE HAGEDORN INSULIN [Concomitant]
     Active Substance: INSULIN HUMAN
     Dosage: DOSE UNKNOWN
     Route: 065
  4. MORPHINE [Concomitant]
     Active Substance: MORPHINE
     Dosage: 8 MG
     Route: 030
  5. CARVEDILOL. [Suspect]
     Active Substance: CARVEDILOL
     Dosage: DOSE UNKNOWN
     Route: 065
  6. METOLAZONE. [Concomitant]
     Active Substance: METOLAZONE
     Dosage: DOSE UNKNOWN
     Route: 065
  7. TORESEMIDE [Concomitant]
     Dosage: DOSE UNKNOWN
     Route: 065
  8. LIDOCAINE HCL [Suspect]
     Active Substance: LIDOCAINE HYDROCHLORIDE
     Dosage: 50ML OF LIDOCAINE 2% (1000MG)
     Route: 058
  9. OXYCODONE/PARACETAMOL [Concomitant]
     Active Substance: ACETAMINOPHEN\OXYCODONE HYDROCHLORIDE
     Dosage: 5 MG/325 MG (2 TABLETS)
     Route: 048
  10. AMLODIPINE [Suspect]
     Active Substance: AMLODIPINE BESYLATE
     Dosage: DOSE UNKNOWN
     Route: 065
  11. NITROGLYCERIN. [Concomitant]
     Active Substance: NITROGLYCERIN
     Dosage: DOSE UNKNOWN
     Route: 065

REACTIONS (8)
  - Toxicity to various agents [Unknown]
  - Drug interaction [Unknown]
  - Accidental overdose [None]
  - Overdose [Unknown]
  - Vomiting [None]
  - Cardiac arrest [Unknown]
  - Unresponsive to stimuli [None]
  - Seizure [Unknown]
